FAERS Safety Report 9822714 (Version 1)
Quarter: 2014Q1

REPORT INFORMATION
  Report Type: Spontaneous
  Country: US (occurrence: US)
  Receive Date: 20140116
  Receipt Date: 20140116
  Transmission Date: 20141002
  Serious: No
  Sender: FDA-Public Use
  Company Number: US-ALLERGAN-1307040US

PATIENT
  Sex: Male

DRUGS (1)
  1. PREDNISOLONE ACETATE, 1.0% [Suspect]
     Indication: PRODUCT USED FOR UNKNOWN INDICATION
     Dosage: UNK
     Route: 047

REACTIONS (2)
  - Visual impairment [Unknown]
  - Predisposition to disease [Unknown]
